FAERS Safety Report 23711774 (Version 1)
Quarter: 2024Q2

REPORT INFORMATION
  Report Type: Spontaneous
  Country: US (occurrence: None)
  Receive Date: 20240404
  Receipt Date: 20240404
  Transmission Date: 20240716
  Serious: No
  Sender: FDA-Public Use
  Company Number: None

PATIENT
  Age: 72 Year
  Sex: Male
  Weight: 67.5 kg

DRUGS (1)
  1. XELODA [Suspect]
     Active Substance: CAPECITABINE
     Indication: Rectal cancer
     Dates: start: 20220701, end: 20220804

REACTIONS (4)
  - Skin discolouration [None]
  - Diarrhoea [None]
  - Abdominal pain [None]
  - Toxicity to various agents [None]

NARRATIVE: CASE EVENT DATE: 20220801
